FAERS Safety Report 5523474-1 (Version None)
Quarter: 2007Q4

REPORT INFORMATION
  Report Type: 
  Country: None (occurrence: None)
  Receive Date: 20071121
  Receipt Date: 20071115
  Transmission Date: 20080405
  Serious: Yes (Other)
  Sender: FDA-Public Use
  Company Number: US-JNJFOC-20071106077

PATIENT
  Age: 70 Year
  Sex: Female
  Weight: 72.58 kg

DRUGS (1)
  1. RAZADYNE [Suspect]
     Indication: DRUG USE FOR UNKNOWN INDICATION

REACTIONS (1)
  - MEDICATION ERROR [None]
